FAERS Safety Report 9297055 (Version 1)
Quarter: 2013Q2

REPORT INFORMATION
  Report Type: Spontaneous
  Country: US (occurrence: US)
  Receive Date: 20130519
  Receipt Date: 20130519
  Transmission Date: 20140414
  Serious: No
  Sender: FDA-Public Use
  Company Number: US-ALLERGAN-1305069US

PATIENT
  Age: 45 Year
  Sex: Male

DRUGS (5)
  1. LASTACAFT [Suspect]
     Indication: EYE ALLERGY
     Dosage: 2 GTT, QAM
     Route: 047
  2. METFORMIN ER [Concomitant]
     Indication: DIABETES MELLITUS
     Dosage: 1000 MG, BID
     Route: 048
  3. SYMBICORT [Concomitant]
     Indication: BLOOD CHOLESTEROL INCREASED
     Dosage: UNK UNK, QHS
     Route: 048
  4. ALBUTEROL INHALER [Concomitant]
     Indication: ASTHMA
     Dosage: UNK, PRN
  5. OTC LUBRICATING EYE DROPS [Concomitant]
     Indication: PRODUCT USED FOR UNKNOWN INDICATION
     Dosage: UNK

REACTIONS (4)
  - Eyelid exfoliation [Not Recovered/Not Resolved]
  - Conjunctivitis [Not Recovered/Not Resolved]
  - Skin haemorrhage [Not Recovered/Not Resolved]
  - Eyelid margin crusting [Not Recovered/Not Resolved]
